FAERS Safety Report 12934346 (Version 7)
Quarter: 2019Q3

REPORT INFORMATION
  Report Type: Report from Study
  Country: BR (occurrence: BR)
  Receive Date: 20161111
  Receipt Date: 20190911
  Transmission Date: 20191004
  Serious: Yes (Other)
  Sender: FDA-Public Use
  Company Number: BR-SA-2016SA203656

PATIENT
  Age: 40 Year
  Sex: Female
  Weight: 80 kg

DRUGS (1)
  1. ALEMTUZUMAB [Suspect]
     Active Substance: ALEMTUZUMAB
     Indication: MULTIPLE SCLEROSIS
     Dosage: 12 MG,QD
     Route: 041
     Dates: start: 20160926, end: 20160930

REACTIONS (9)
  - Blood test abnormal [Not Recovered/Not Resolved]
  - Skin plaque [Recovering/Resolving]
  - Hypersensitivity [Recovering/Resolving]
  - Purpura [Recovered/Resolved]
  - Immunodeficiency [Unknown]
  - Intervertebral disc protrusion [Recovered/Resolved]
  - Platelet count decreased [Unknown]
  - Fatigue [Not Recovered/Not Resolved]
  - Pain [Recovered/Resolved]

NARRATIVE: CASE EVENT DATE: 20161020
